FAERS Safety Report 4712593-5 (Version None)
Quarter: 2005Q3

REPORT INFORMATION
  Report Type: 
  Country: None (occurrence: None)
  Receive Date: 20050712
  Receipt Date: 20050707
  Transmission Date: 20060218
  Serious: Yes (Other)
  Sender: FDA-Public Use
  Company Number: US-MERCK-0507USA00737

PATIENT
  Age: 78 Year
  Sex: Male

DRUGS (2)
  1. ZOCOR [Suspect]
     Indication: BLOOD CHOLESTEROL INCREASED
     Route: 048
     Dates: start: 20050101, end: 20050601
  2. LOPID [Concomitant]
     Route: 065
     Dates: end: 20050601

REACTIONS (3)
  - CHOLECYSTECTOMY [None]
  - GALLBLADDER DISORDER [None]
  - PARAESTHESIA [None]
